FAERS Safety Report 6186119-6 (Version None)
Quarter: 2009Q2

REPORT INFORMATION
  Report Type: 
  Country: None (occurrence: None)
  Receive Date: 20090511
  Receipt Date: 20090507
  Transmission Date: 20091009
  Serious: Yes (Hospitalization)
  Sender: FDA-Public Use
  Company Number: TR-ROXANE LABORATORIES, INC.-2009-RO-00460RO

PATIENT
  Age: 55 Year
  Sex: Female

DRUGS (8)
  1. DEXAMETHASONE 4MG TAB [Suspect]
     Indication: BRAIN OEDEMA
     Dosage: 2MG
  2. TEMOZOLOMIDE [Suspect]
     Indication: MALIGNANT GLIOMA
  3. GRANULOCYTE-STIMULATING FACTOR [Suspect]
     Indication: LEUKOPENIA
  4. GRANULOCYTE-STIMULATING FACTOR [Suspect]
     Indication: THROMBOCYTOPENIA
  5. OXYGEN [Concomitant]
     Indication: OXYGEN SATURATION DECREASED
     Route: 045
  6. IMIPENEM [Concomitant]
  7. AMIKACIN [Concomitant]
  8. GANCICLOVIR [Concomitant]
     Indication: PNEUMONIA CYTOMEGALOVIRAL

REACTIONS (3)
  - LEUKOPENIA [None]
  - PNEUMONIA CYTOMEGALOVIRAL [None]
  - THROMBOCYTOPENIA [None]
